FAERS Safety Report 9462111 (Version 1)
Quarter: 2013Q3

REPORT INFORMATION
  Report Type: Spontaneous
  Country: US (occurrence: None)
  Receive Date: 20130815
  Receipt Date: 20130815
  Transmission Date: 20140515
  Serious: Yes (Hospitalization)
  Sender: FDA-Public Use
  Company Number: None

PATIENT
  Age: 31 Year
  Sex: Female
  Weight: 50 kg

DRUGS (5)
  1. HUMULIN 70/30 [Suspect]
     Indication: DIABETES MELLITUS
     Dosage: 30 UNITS/100 UNITS QAM/QPM
     Route: 058
  2. PHENERGAN [Concomitant]
  3. PRENATAL VITAMIN [Concomitant]
  4. FLUTICASONE [Concomitant]
  5. CLARITIN [Concomitant]

REACTIONS (4)
  - Hypoglycaemia [None]
  - Unresponsive to stimuli [None]
  - Nausea [None]
  - Hypophagia [None]
